FAERS Safety Report 17727567 (Version 3)
Quarter: 2020Q3

REPORT INFORMATION
  Report Type: Spontaneous
  Country: PT (occurrence: PT)
  Receive Date: 20200430
  Receipt Date: 20200812
  Transmission Date: 20201102
  Serious: Yes (Hospitalization, Other)
  Sender: FDA-Public Use
  Company Number: PT-009507513-2004PRT007000

PATIENT
  Age: 82 Year
  Sex: Female

DRUGS (6)
  1. BISOPROLOL [Suspect]
     Active Substance: BISOPROLOL
     Indication: PRODUCT USED FOR UNKNOWN INDICATION
     Dosage: 2.5 MG, QD
     Route: 065
  2. LOSARTAN POTASSIUM. [Suspect]
     Active Substance: LOSARTAN POTASSIUM
     Indication: PRODUCT USED FOR UNKNOWN INDICATION
     Dosage: 50 MG, QD
     Route: 065
  3. METFORMIN HYDROCHLORIDE (+) VILDAGLIPTIN [Suspect]
     Active Substance: METFORMIN HYDROCHLORIDE\VILDAGLIPTIN
     Indication: PRODUCT USED FOR UNKNOWN INDICATION
     Dosage: UNK, BID, 50+1000 MG
     Route: 065
  4. CEFTRIAXONE. [Suspect]
     Active Substance: CEFTRIAXONE
     Indication: MENINGITIS BACTERIAL
     Dosage: 2 G, Q2H
     Route: 065
  5. FENOFIBRATE. [Concomitant]
     Active Substance: FENOFIBRATE
     Indication: PRODUCT USED FOR UNKNOWN INDICATION
     Dosage: 25 MG, QD
     Route: 065
  6. AMPICILLIN AND SULBACTAM [Suspect]
     Active Substance: AMPICILLIN SODIUM\SULBACTAM SODIUM
     Indication: MENINGITIS BACTERIAL
     Dosage: 1 G, EVERY 4 HOURS (6/DAY)
     Route: 065

REACTIONS (12)
  - Normochromic normocytic anaemia [Unknown]
  - Dermatitis bullous [Recovered/Resolved]
  - Abnormal behaviour [Unknown]
  - Hyporesponsive to stimuli [Unknown]
  - Confusional state [Recovering/Resolving]
  - Hypotension [Unknown]
  - Pyrexia [Recovering/Resolving]
  - Oedema [Unknown]
  - Purpura [Recovered/Resolved]
  - Skin necrosis [Unknown]
  - Hypersensitivity vasculitis [Recovered/Resolved]
  - Drug hypersensitivity [Recovered/Resolved]
